FAERS Safety Report 10906441 (Version 1)
Quarter: 2015Q1

REPORT INFORMATION
  Report Type: Spontaneous
  Country: FR (occurrence: FR)
  Receive Date: 20150312
  Receipt Date: 20150312
  Transmission Date: 20150721
  Serious: Yes (Hospitalization)
  Sender: FDA-Public Use
  Company Number: FR-AUROBINDO-AUR-APL-2015-02039

PATIENT
  Age: 91 Year
  Sex: Male

DRUGS (3)
  1. XATRAL [Suspect]
     Active Substance: ALFUZOSIN
     Indication: PRODUCT USED FOR UNKNOWN INDICATION
     Dosage: 10 MG, DAILY
     Route: 048
     Dates: start: 201501, end: 20150202
  2. CITALOPRAM ARROW FILM-COATED TABLET [Suspect]
     Active Substance: CITALOPRAM HYDROBROMIDE
     Indication: PRODUCT USED FOR UNKNOWN INDICATION
     Dosage: 1 DF, DAILY
     Route: 048
     Dates: start: 20150124, end: 20150202
  3. CEFTRIAXONE PANPHARMA [Suspect]
     Active Substance: CEFTRIAXONE
     Indication: PROSTATITIS
     Dosage: 1 G, DAILY
     Route: 042
     Dates: start: 20150112, end: 20150202

REACTIONS (1)
  - Agranulocytosis [Recovered/Resolved]

NARRATIVE: CASE EVENT DATE: 20150203
